FAERS Safety Report 8810909 (Version 1)
Quarter: 2012Q4

REPORT INFORMATION
  Report Type: Spontaneous
  Country: GB (occurrence: None)
  Receive Date: 20120921
  Receipt Date: 20120921
  Transmission Date: 20130627
  Serious: Yes (Death, Hospitalization)
  Sender: FDA-Public Use
  Company Number: GER/UKI/12/0025920

PATIENT
  Age: 49 Year
  Sex: Female

DRUGS (8)
  1. GEMCITABINE (GEMCITABINE) [Suspect]
     Indication: DRUG USE FOR UNKNOWN INDICATION
     Dates: start: 20120103
  2. CISPLATIN [Suspect]
     Indication: DRUG USE FOR UNKNOWN INDICATION
     Dates: start: 20120103
  3. DALTEPARIN SODIUM (DALTEPARIN SODIUM) UNKNOWN [Suspect]
     Indication: LUNG CANCER
     Dates: start: 20111212
  4. DOMPERIDONE (DOMPERIDONE) [Concomitant]
  5. FERROUS SULPHATE (FERROUS SULFATE) [Concomitant]
  6. PARACETAMOL (PARACETAMOL) [Concomitant]
  7. SEREVENT (SALMETEROL XINAFOATE) [Concomitant]
  8. SYMBICORT (BUDESONIDE W/FORMOTEROL FUMARATE) [Concomitant]

REACTIONS (7)
  - Anaemia [None]
  - Cough [None]
  - Oropharyngeal pain [None]
  - Thrombocytopenia [None]
  - Malaise [None]
  - Haemoptysis [None]
  - Cardiac arrest [None]
